FAERS Safety Report 8968964 (Version 1)
Quarter: 2012Q4

REPORT INFORMATION
  Report Type: 
  Country: US (occurrence: US)
  Receive Date: 20121218
  Receipt Date: 20121218
  Transmission Date: 20130627
  Serious: Yes (Hospitalization)
  Sender: FDA-Public Use
  Company Number: US-BRISTOL-MYERS SQUIBB COMPANY-16328536

PATIENT
  Age: 37 Year
  Sex: Female

DRUGS (2)
  1. ARIPIPRAZOLE [Suspect]
  2. LAMICTAL [Suspect]
     Indication: BIPOLAR DISORDER
     Dosage: Tab
     Route: 048

REACTIONS (1)
  - Overdose [Unknown]
